FAERS Safety Report 16344324 (Version 1)
Quarter: 2019Q2

REPORT INFORMATION
  Report Type: Spontaneous
  Country: US (occurrence: US)
  Receive Date: 20190522
  Receipt Date: 20190522
  Transmission Date: 20190711
  Serious: Yes (Hospitalization, Other)
  Sender: FDA-Public Use
  Company Number: US-SUNOVION-2019SUN002116

PATIENT
  Age: 27 Year
  Sex: Male

DRUGS (9)
  1. OLANZAPINE. [Suspect]
     Active Substance: OLANZAPINE
     Dosage: 30 UNK
     Route: 048
  2. LATUDA [Suspect]
     Active Substance: LURASIDONE HYDROCHLORIDE
     Dosage: 40 MG
     Route: 048
  3. LATUDA [Suspect]
     Active Substance: LURASIDONE HYDROCHLORIDE
     Dosage: 80 MG
     Route: 048
  4. FLUOXETINE [Suspect]
     Active Substance: FLUOXETINE HYDROCHLORIDE
     Dosage: 20 UNK
     Route: 048
  5. ZIPRASIDONE. [Suspect]
     Active Substance: ZIPRASIDONE
     Dosage: 40 MG, BID
  6. OLANZAPINE. [Suspect]
     Active Substance: OLANZAPINE
     Dosage: 40 MG
     Route: 048
  7. FLUOXETINE [Suspect]
     Active Substance: FLUOXETINE HYDROCHLORIDE
     Indication: DEPRESSION
     Dosage: 10 MG
     Route: 048
  8. FLUPHENAZINE [Concomitant]
     Active Substance: FLUPHENAZINE
  9. VALPROAT [Suspect]
     Active Substance: VALPROATE SODIUM
     Indication: AFFECTIVE DISORDER
     Dosage: 1500 MG

REACTIONS (1)
  - Psychotic symptom [Recovered/Resolved]
